FAERS Safety Report 5091099-0 (Version None)
Quarter: 2006Q3

REPORT INFORMATION
  Report Type: 
  Country: None (occurrence: None)
  Receive Date: 20060829
  Receipt Date: 20060821
  Transmission Date: 20061208
  Serious: Yes (Death, Life-Threatening, Hospitalization)
  Sender: FDA-Public Use
  Company Number: GB-JNJFOC-20060804848

PATIENT
  Age: 63 Year
  Sex: Female
  Weight: 45 kg

DRUGS (10)
  1. REMICADE [Suspect]
     Indication: DRUG USE FOR UNKNOWN INDICATION
     Route: 042
  2. HYDROCORTISONE [Suspect]
     Indication: DRUG USE FOR UNKNOWN INDICATION
     Route: 048
  3. PREDNISOLONE [Suspect]
     Indication: DRUG USE FOR UNKNOWN INDICATION
     Route: 048
  4. ATENOLOL [Concomitant]
     Route: 048
  5. CALCICHEW D3 [Concomitant]
     Route: 048
  6. CLEXANE [Concomitant]
     Route: 058
  7. FOSAMAX [Concomitant]
     Route: 048
  8. QUININE SULFATE [Concomitant]
     Route: 048
  9. SANDO-K [Concomitant]
     Route: 048
  10. SIMVASTATIN [Concomitant]
     Route: 048

REACTIONS (5)
  - ARTHRITIS [None]
  - ISCHAEMIC STROKE [None]
  - PEPTIC ULCER HAEMORRHAGE [None]
  - PNEUMONIA STAPHYLOCOCCAL [None]
  - SEPSIS [None]
